FAERS Safety Report 17213235 (Version 1)
Quarter: 2020Q1

REPORT INFORMATION
  Report Type: Spontaneous
  Country: US (occurrence: US)
  Receive Date: 20191227
  Receipt Date: 20191227
  Transmission Date: 20200409
  Serious: No
  Sender: FDA-Public Use
  Company Number: None

PATIENT
  Age: 66 Year
  Sex: Female
  Weight: 55 kg

DRUGS (2)
  1. TAXOL [Suspect]
     Active Substance: PACLITAXEL
     Indication: METASTASES TO PERITONEUM
     Dosage: ?          OTHER FREQUENCY:1 X INFUSION;?
     Route: 041
     Dates: start: 20191226, end: 20191226
  2. HYDROCORTISONE 100 MG [Concomitant]
     Dates: start: 20191226, end: 20191226

REACTIONS (3)
  - Infusion related reaction [None]
  - Nausea [None]
  - Erythema [None]

NARRATIVE: CASE EVENT DATE: 20191226
